FAERS Safety Report 8585577-7 (Version None)
Quarter: 2012Q3

REPORT INFORMATION
  Report Type: 
  Country: None (occurrence: None)
  Receive Date: 20120810
  Receipt Date: 20120801
  Transmission Date: 20120928
  Serious: Yes (Other)
  Sender: FDA-Public Use
  Company Number: BR-JNJFOC-20120800366

PATIENT
  Sex: Male
  Weight: 73 kg

DRUGS (5)
  1. OMEPRAZOLE [Interacting]
     Indication: GASTROOESOPHAGEAL REFLUX DISEASE
     Route: 048
     Dates: start: 20020101
  2. CLONAZEPAM [Concomitant]
     Indication: SLEEP DISORDER THERAPY
     Route: 048
  3. BUDESONIDE-FORMOTEROL [Concomitant]
     Indication: ASTHMA
     Route: 048
     Dates: start: 20090101
  4. REMICADE [Suspect]
     Indication: ANKYLOSING SPONDYLITIS
     Route: 042
     Dates: start: 20120717
  5. IMIPRAMINE HCL [Concomitant]
     Indication: FIBROMYALGIA
     Route: 048
     Dates: start: 20100101

REACTIONS (6)
  - ASTHENIA [None]
  - PAIN [None]
  - TACHYCARDIA [None]
  - DRUG INTERACTION [None]
  - DYSPNOEA [None]
  - PALPITATIONS [None]
